FAERS Safety Report 7594456 (Version 4)
Quarter: 2012Q4

REPORT INFORMATION
  Report Type: 
  Country: US (occurrence: US)
  Receive Date: 20100920
  Receipt Date: 20121221
  Transmission Date: 20130627
  Serious: Yes (Hospitalization)
  Sender: FDA-Public Use
  Company Number: US-BAYER-201033779NA

PATIENT
  Age: 35 Year
  Sex: Female
  Weight: 132 kg

DRUGS (4)
  1. YAZ [Suspect]
     Indication: ACNE
     Dosage: UNK
     Dates: start: 2002, end: 200712
  2. YASMIN [Suspect]
     Indication: ACNE
     Dosage: UNK
     Dates: start: 2002, end: 200712
  3. DILTIAZEM [Concomitant]
     Dosage: 180 mg, UNK
     Dates: start: 2001
  4. HYDROCHLOROTHIAZIDE [Concomitant]

REACTIONS (4)
  - Cerebellar infarction [None]
  - Brain stem infarction [None]
  - Cerebrovascular accident [None]
  - Pulmonary embolism [None]
